FAERS Safety Report 19701920 (Version 2)
Quarter: 2021Q4

REPORT INFORMATION
  Report Type: Report from Study
  Country: US (occurrence: US)
  Receive Date: 20210813
  Receipt Date: 20211011
  Transmission Date: 20220303
  Serious: No
  Sender: FDA-Public Use
  Company Number: US-INCYTE CORPORATION-2021IN006102

PATIENT

DRUGS (1)
  1. JAKAFI [Suspect]
     Active Substance: RUXOLITINIB
     Indication: Myelofibrosis
     Dosage: 20 MILLIGRAM, BID
     Route: 048
     Dates: start: 20210628, end: 20210831

REACTIONS (5)
  - Hypoacusis [Unknown]
  - Hypersomnia [Unknown]
  - Decreased appetite [Unknown]
  - Product taste abnormal [Unknown]
  - Weight increased [Unknown]
